FAERS Safety Report 13562443 (Version 1)
Quarter: 2017Q2

REPORT INFORMATION
  Report Type: Report from Study
  Country: US (occurrence: US)
  Receive Date: 20170519
  Receipt Date: 20170519
  Transmission Date: 20170830
  Serious: Yes (Death)
  Sender: FDA-Public Use
  Company Number: US-TAIHO ONCOLOGY INC-EU-2017-00783

PATIENT
  Age: 58 Year
  Sex: Female
  Weight: 63.56 kg

DRUGS (3)
  1. LONSURF [Suspect]
     Active Substance: TIPIRACIL HYDROCHLORIDE\TRIFLURIDINE
     Indication: COLON CANCER METASTATIC
     Dosage: CYCLE 1, DOSAGE REGIMEN UNKNOWN
     Route: 048
     Dates: start: 201704
  2. INSULIN [Concomitant]
     Active Substance: INSULIN NOS
     Dosage: NI
  3. PREDNISONE. [Concomitant]
     Active Substance: PREDNISONE
     Dosage: NI

REACTIONS (1)
  - Respiratory arrest [Fatal]

NARRATIVE: CASE EVENT DATE: 20170421
